FAERS Safety Report 5849143-6 (Version None)
Quarter: 2008Q3

REPORT INFORMATION
  Report Type: 
  Country: None (occurrence: None)
  Receive Date: 20080819
  Receipt Date: 20080723
  Transmission Date: 20090109
  Serious: No
  Sender: FDA-Public Use
  Company Number: PR-BAYER-200829742NA

PATIENT
  Age: 18 Year
  Sex: Female

DRUGS (2)
  1. AVELOX [Suspect]
     Indication: DRUG USE FOR UNKNOWN INDICATION
  2. DYPHYLLIN GG [Concomitant]

REACTIONS (2)
  - HYPERSENSITIVITY [None]
  - URTICARIA [None]
